FAERS Safety Report 4341514-2 (Version None)
Quarter: 2004Q2

REPORT INFORMATION
  Report Type: 
  Country: None (occurrence: None)
  Receive Date: 20040419
  Receipt Date: 20040419
  Transmission Date: 20050107
  Serious: Yes (Other)
  Sender: FDA-Public Use
  Company Number: None

PATIENT
  Age: 44 Year
  Sex: Male
  Weight: 95.2554 kg

DRUGS (5)
  1. BEXTRA [Suspect]
     Indication: ARTHRALGIA
     Dosage: 1 DAY
     Dates: start: 20040412, end: 20040415
  2. BEXTRA [Suspect]
     Indication: ERYTHEMA
     Dosage: 1 DAY
     Dates: start: 20040412, end: 20040415
  3. BEXTRA [Suspect]
     Indication: FEELING HOT
     Dosage: 1 DAY
     Dates: start: 20040412, end: 20040415
  4. BEXTRA [Suspect]
     Indication: PRURITUS
     Dosage: 1 DAY
     Dates: start: 20040412, end: 20040415
  5. BEXTRA [Suspect]

REACTIONS (4)
  - ARTHRALGIA [None]
  - FEELING HOT [None]
  - OEDEMA PERIPHERAL [None]
  - RASH MACULO-PAPULAR [None]
